FAERS Safety Report 8672275 (Version 2)
Quarter: 2013Q4

REPORT INFORMATION
  Report Type: Spontaneous
  Country: US (occurrence: US)
  Receive Date: 20120719
  Receipt Date: 20131101
  Transmission Date: 20140711
  Serious: No
  Sender: FDA-Public Use
  Company Number: US-009507513-1207USA003111

PATIENT
  Age: 49 Year
  Sex: Male
  Weight: 58.96 kg

DRUGS (6)
  1. PEGINTRON [Suspect]
     Dosage: 0.4 ML, QW
     Route: 058
  2. AMBIEN [Concomitant]
     Dosage: 5 MG, UNK
  3. CEPHALEXIN [Concomitant]
     Dosage: 250 MG, UNK
  4. ACETAMINOPHEN (+) HYDROCODONE BITARTRATE [Concomitant]
     Dosage: 10-500 MG,UNK
  5. RIBAPAK [Concomitant]
     Dosage: UNK UNK, QD
  6. INCIVEK [Concomitant]
     Dosage: 375 MG, UNK

REACTIONS (3)
  - Affect lability [Unknown]
  - Headache [Unknown]
  - Fatigue [Unknown]
